FAERS Safety Report 6094814-2 (Version None)
Quarter: 2009Q1

REPORT INFORMATION
  Report Type: 
  Country: None (occurrence: None)
  Receive Date: 20090227
  Receipt Date: 20090216
  Transmission Date: 20090719
  Serious: Yes (Hospitalization)
  Sender: FDA-Public Use
  Company Number: GB-BAXTER-2009BH002568

PATIENT
  Sex: Female

DRUGS (3)
  1. CYCLOPHOSPHAMIDE [Suspect]
     Indication: MULTIPLE MYELOMA
     Route: 065
  2. DEXAMETHASONE [Suspect]
     Indication: MULTIPLE MYELOMA
     Route: 065
  3. VELCADE [Suspect]
     Indication: MULTIPLE MYELOMA
     Route: 065

REACTIONS (3)
  - ABDOMINAL PAIN UPPER [None]
  - CHILLS [None]
  - TREMOR [None]
